FAERS Safety Report 19080456 (Version 5)
Quarter: 2024Q2

REPORT INFORMATION
  Report Type: Spontaneous
  Country: US (occurrence: US)
  Receive Date: 20210331
  Receipt Date: 20240607
  Transmission Date: 20240715
  Serious: Yes (Other)
  Sender: FDA-Public Use
  Company Number: US-PFIZER INC-2017026664

PATIENT
  Age: 36 Year
  Sex: Male
  Weight: 69 kg

DRUGS (7)
  1. BENEFIX [Suspect]
     Active Substance: COAGULATION FACTOR IX RECOMBINANT HUMAN\ISOPROPYL ALCOHOL
     Indication: Factor IX deficiency
     Dosage: INFUSE 6900 UNITS (ACTUAL)= 100 U/KG (+/- 10 %)
  2. BENEFIX [Suspect]
     Active Substance: COAGULATION FACTOR IX RECOMBINANT HUMAN\ISOPROPYL ALCOHOL
     Indication: Haemorrhage
     Dosage: INFUSE BENEFIX 7300 UNITS (+/-10%) = 100 UNITSLKG DAILY X 1 ON DEMAND FOR BLEEDS
  3. BENEFIX [Suspect]
     Active Substance: COAGULATION FACTOR IX RECOMBINANT HUMAN\ISOPROPYL ALCOHOL
     Dosage: INFUSE BENEFIX 7300 UNITS (+/-10%) = 100 UNITS/KG EVERY OTHER DAY
  4. BENEFIX [Suspect]
     Active Substance: COAGULATION FACTOR IX RECOMBINANT HUMAN\ISOPROPYL ALCOHOL
     Dosage: INFUSE BENEFIX 7300 UNITS (+/-10%) = 100 UNITS/KG DAILY X 4
  5. BENEFIX [Suspect]
     Active Substance: COAGULATION FACTOR IX RECOMBINANT HUMAN\ISOPROPYL ALCOHOL
     Dosage: INFUSE BENEFIX 7300 UNITS (+/-10%) = 100 UNITS/KG DAILY X14 DAYS
  6. BENEFIX [Suspect]
     Active Substance: COAGULATION FACTOR IX RECOMBINANT HUMAN\ISOPROPYL ALCOHOL
     Dosage: INFUSE BENEFIX 7300 IU (+/-10% ) = 100 IU/KG DAILY X 1 ON-DEMAND FOR A BLEED
  7. BENEFIX [Suspect]
     Active Substance: COAGULATION FACTOR IX RECOMBINANT HUMAN\ISOPROPYL ALCOHOL
     Dosage: INFUSE BENEFIX 7700 IU (+/- 10%) = 100 IU/KG DAILY X 1 ON-DEMAND FOR A BLEED

REACTIONS (5)
  - Haemarthrosis [Unknown]
  - Haemorrhage [Unknown]
  - Dental operation [Unknown]
  - Haemarthrosis [Unknown]
  - Expired product administered [Unknown]
